FAERS Safety Report 18907776 (Version 3)
Quarter: 2021Q1

REPORT INFORMATION
  Report Type: Report from Study
  Country: TW (occurrence: TW)
  Receive Date: 20210218
  Receipt Date: 20210224
  Transmission Date: 20210420
  Serious: Yes (Life-Threatening, Hospitalization)
  Sender: FDA-Public Use
  Company Number: TW-ROCHE-2770362

PATIENT
  Age: 70 Year
  Sex: Male

DRUGS (7)
  1. DOXABEN [Concomitant]
     Active Substance: DOXAZOSIN MESYLATE
  2. AMIZIDE [Concomitant]
     Active Substance: AMILORIDE HYDROCHLORIDE\HYDROCHLOROTHIAZIDE
  3. ENTECAVIR. [Concomitant]
     Active Substance: ENTECAVIR
  4. ATEZOLIZUMAB. [Suspect]
     Active Substance: ATEZOLIZUMAB
     Indication: HEPATOCELLULAR CARCINOMA
     Route: 042
     Dates: start: 20210204
  5. KY1044 [Suspect]
     Active Substance: INVESTIGATIONAL PRODUCT
     Indication: HEPATOCELLULAR CARCINOMA
     Route: 042
     Dates: start: 20210204
  6. ASPIRIN. [Concomitant]
     Active Substance: ASPIRIN
     Dates: start: 20210203
  7. CONCOR [Concomitant]
     Active Substance: BISOPROLOL FUMARATE
     Dates: start: 20150504

REACTIONS (2)
  - Hyponatraemia [Recovered/Resolved]
  - Cellulitis [Unknown]

NARRATIVE: CASE EVENT DATE: 20210205
